FAERS Safety Report 7908982-8 (Version None)
Quarter: 2011Q4

REPORT INFORMATION
  Report Type: 
  Country: None (occurrence: None)
  Receive Date: 20111110
  Receipt Date: 20111110
  Transmission Date: 20120403
  Serious: Yes (Other)
  Sender: FDA-Public Use
  Company Number: None

PATIENT
  Sex: Male

DRUGS (3)
  1. PEGASYS [Concomitant]
  2. RIBAVIRIN [Concomitant]
  3. VICTRELIS 200MG CAP #338 [Suspect]
     Dosage: 800MG TID PO
     Route: 048
     Dates: start: 20110801

REACTIONS (4)
  - MOOD SWINGS [None]
  - DECREASED APPETITE [None]
  - GASTROOESOPHAGEAL REFLUX DISEASE [None]
  - DYSGEUSIA [None]
